FAERS Safety Report 7345993 (Version 2)
Quarter: 2014Q2

REPORT INFORMATION
  Report Type: Spontaneous
  Country: None (occurrence: None)
  Receive Date: 20100322
  Receipt Date: 20140415
  Transmission Date: 20141212
  Serious: Yes (Other)
  Sender: FDA-Public Use
  Company Number: AUR-APL-2010-00689

PATIENT
  Sex: 0

DRUGS (4)
  1. GABAPENTIN [Suspect]
     Indication: SUICIDE ATTEMPT
     Dosage: 56GM - ONE TIME
     Route: 048
  2. TOPIRAMATE (TOPIRAMATE) [Suspect]
     Indication: SUICIDE ATTEMPT
     Dosage: 2 GM - ONE TIME
     Route: 048
  3. LACOSAMIDE [Suspect]
     Indication: CONVULSION
     Dosage: 12 GM - ONE TIME
  4. ZONISAMIDE [Suspect]
     Indication: SUICIDE ATTEMPT
     Dosage: 2.8 GM - ONE TIME
     Route: 048

REACTIONS (15)
  - Atrioventricular block first degree [None]
  - Coma [None]
  - Suicide attempt [None]
  - Generalised tonic-clonic seizure [None]
  - Vomiting [None]
  - Pneumonia aspiration [None]
  - Blood pressure decreased [None]
  - Areflexia [None]
  - Acidosis [None]
  - Blood potassium decreased [None]
  - Pyrexia [None]
  - Toxicity to various agents [None]
  - Encephalopathy [None]
  - Electrocardiogram PR prolongation [None]
  - Intentional overdose [None]
